FAERS Safety Report 9776399 (Version 1)
Quarter: 2013Q4

REPORT INFORMATION
  Report Type: Spontaneous
  Country: US (occurrence: US)
  Receive Date: 20131220
  Receipt Date: 20131220
  Transmission Date: 20140711
  Serious: Yes (Hospitalization)
  Sender: FDA-Public Use
  Company Number: US-MYLANLABS-2013S1028006

PATIENT
  Age: 10 Year
  Sex: Male

DRUGS (1)
  1. ZOLPIDEM [Suspect]
     Indication: OVERDOSE
     Dosage: DF = 5MG (85MG INGESTED IN TOTAL)
     Route: 048

REACTIONS (4)
  - Overdose [Recovered/Resolved]
  - Depressed level of consciousness [Recovered/Resolved]
  - Nystagmus [Recovered/Resolved]
  - Hypotension [Recovered/Resolved]
